FAERS Safety Report 4539053-9 (Version None)
Quarter: 2004Q4

REPORT INFORMATION
  Report Type: 
  Country: None (occurrence: None)
  Receive Date: 20041222
  Receipt Date: 20041215
  Transmission Date: 20050328
  Serious: Yes (Hospitalization, Other)
  Sender: FDA-Public Use
  Company Number: 2004-12-0834

PATIENT
  Age: 45 Year
  Sex: Female
  Weight: 80.2867 kg

DRUGS (2)
  1. PEG-INTRON [Suspect]
     Indication: HEPATITIS C
     Dosage: 150 MCG QWK SUBCUTANEOUS
     Route: 058
     Dates: start: 20040825, end: 20041101
  2. REBETOL [Suspect]
     Indication: HEPATITIS C
     Dosage: 600 MG BID ORAL
     Route: 048
     Dates: start: 20040825, end: 20041101

REACTIONS (5)
  - ANAEMIA [None]
  - BURKITT'S LYMPHOMA [None]
  - HAEMATEMESIS [None]
  - NON-HODGKIN'S LYMPHOMA [None]
  - RENAL FAILURE [None]
